FAERS Safety Report 14757079 (Version 1)
Quarter: 2018Q2

REPORT INFORMATION
  Report Type: Other
  Country: US (occurrence: US)
  Receive Date: 20180413
  Receipt Date: 20180413
  Transmission Date: 20180711
  Serious: Yes (Hospitalization)
  Sender: FDA-Public Use
  Company Number: US-VELOXIS PHARMACEUTICALS-2045737

PATIENT
  Age: 40 Year
  Sex: Male

DRUGS (12)
  1. IFOSFAMIDE. [Concomitant]
     Active Substance: IFOSFAMIDE
  2. ANTITHYMOCYTE IMMUNOGLOBULIN (RABBIT) [Concomitant]
     Active Substance: LAPINE T-LYMPHOCYTE IMMUNE GLOBULIN
  3. TRIMETHOPRIM SULFAMETHOXAZOLE [Concomitant]
     Active Substance: SULFAMETHOXAZOLE\TRIMETHOPRIM
  4. MYCOPHENOLATE MOFETIL. [Suspect]
     Active Substance: MYCOPHENOLATE MOFETIL
  5. VALGANCICLOVIR. [Concomitant]
     Active Substance: VALGANCICLOVIR
  6. MYCOPHENOLATE MOFETIL. [Suspect]
     Active Substance: MYCOPHENOLATE MOFETIL
  7. ENVARSUS XR [Suspect]
     Active Substance: TACROLIMUS
     Indication: RENAL TRANSPLANT
  8. DOXORUBICIN [Concomitant]
     Active Substance: DOXORUBICIN
  9. NYSTATIN. [Concomitant]
     Active Substance: NYSTATIN
  10. ENVARSUS XR [Suspect]
     Active Substance: TACROLIMUS
  11. DACARBAZINE. [Concomitant]
     Active Substance: DACARBAZINE
  12. MESNA. [Concomitant]
     Active Substance: MESNA

REACTIONS (3)
  - Viral haemorrhagic cystitis [Recovered/Resolved]
  - Renal tubular injury [Recovered/Resolved]
  - BK virus infection [Recovered/Resolved]
